FAERS Safety Report 7365202-3 (Version None)
Quarter: 2011Q1

REPORT INFORMATION
  Report Type: 
  Country: None (occurrence: None)
  Receive Date: 20110321
  Receipt Date: 20110307
  Transmission Date: 20110831
  Serious: Yes (Other)
  Sender: FDA-Public Use
  Company Number: HK-MYLANLABS-2011S1004742

PATIENT
  Age: 7 Year
  Sex: Female

DRUGS (3)
  1. CISPLATIN [Suspect]
     Indication: PITUITARY TUMOUR
     Route: 065
  2. ETOPOSIDE [Suspect]
     Indication: PITUITARY TUMOUR
     Route: 065
  3. BLEOMYCIN SULFATE [Suspect]
     Indication: PITUITARY TUMOUR
     Route: 065

REACTIONS (1)
  - POSTERIOR REVERSIBLE ENCEPHALOPATHY SYNDROME [None]
